FAERS Safety Report 8163661-X (Version None)
Quarter: 2012Q1

REPORT INFORMATION
  Report Type: 
  Country: None (occurrence: None)
  Receive Date: 20120103
  Receipt Date: 20111120
  Transmission Date: 20120608
  Serious: No
  Sender: FDA-Public Use
  Company Number: AE-2011-003821

PATIENT
  Age: 46 Year
  Sex: Male
  Weight: 95.2554 kg

DRUGS (8)
  1. FISH OIL (FISH OIL) [Concomitant]
  2. INCIVEK [Suspect]
     Dosage: 2250 MG (750 MG,1 IN 8 HR),ORAL
     Route: 048
     Dates: start: 20111024
  3. PEGASYS [Concomitant]
  4. RIBAVIRIN [Concomitant]
  5. FENTANYL [Concomitant]
  6. ASPIRIN [Concomitant]
  7. HYDROCODONE BITARTRATE [Concomitant]
  8. LISINOPRIL [Concomitant]

REACTIONS (1)
  - INCORRECT DRUG ADMINISTRATION DURATION [None]
